FAERS Safety Report 7029624-2 (Version None)
Quarter: 2010Q4

REPORT INFORMATION
  Report Type: 
  Country: None (occurrence: None)
  Receive Date: 20101005
  Receipt Date: 20100929
  Transmission Date: 20110411
  Serious: Yes (Other)
  Sender: FDA-Public Use
  Company Number: GB-MERCK-0906GBR00126

PATIENT
  Age: 68 Year
  Sex: Female
  Weight: 89 kg

DRUGS (5)
  1. PRINIVIL [Suspect]
     Indication: HYPERTENSION
     Route: 048
     Dates: start: 20090324, end: 20090410
  2. CANDESARTAN CILEXETIL [Suspect]
     Indication: HYPERTENSION
     Route: 048
     Dates: start: 20090413, end: 20090430
  3. BENDROFLUMETHIAZIDE [Concomitant]
     Indication: HYPERTENSION
     Route: 048
  4. ACETAMINOPHEN AND DIHYDROCODEINE BITARTRATE [Concomitant]
     Indication: ARTHRITIS
     Route: 048
  5. OMEPRAZOLE [Concomitant]
     Indication: ABDOMINAL PAIN UPPER
     Route: 048

REACTIONS (7)
  - INSOMNIA [None]
  - MYALGIA [None]
  - ORAL PAIN [None]
  - OROPHARYNGEAL BLISTERING [None]
  - PAIN IN EXTREMITY [None]
  - STRESS [None]
  - TONGUE BLISTERING [None]
